FAERS Safety Report 9787066 (Version 1)
Quarter: 2013Q4

REPORT INFORMATION
  Report Type: Spontaneous
  Country: ES (occurrence: ES)
  Receive Date: 20131227
  Receipt Date: 20131227
  Transmission Date: 20140711
  Serious: Yes (Hospitalization)
  Sender: FDA-Public Use
  Company Number: ES-ROCHE-1326147

PATIENT
  Age: 74 Year
  Sex: Male

DRUGS (8)
  1. MABTHERA [Suspect]
     Indication: BURKITT^S LYMPHOMA
     Route: 042
     Dates: start: 20130326, end: 20130326
  2. VINCRISTINE [Suspect]
     Indication: BURKITT^S LYMPHOMA
     Route: 042
     Dates: start: 20130327, end: 20130327
  3. METHOTREXATE [Suspect]
     Indication: BURKITT^S LYMPHOMA
     Route: 042
     Dates: start: 20130327, end: 20130327
  4. CYCLOPHOSPHAMIDE [Suspect]
     Indication: BURKITT^S LYMPHOMA
     Route: 042
     Dates: start: 20130327, end: 20130331
  5. FUROSEMIDE [Concomitant]
     Route: 042
     Dates: start: 20130325
  6. PANTOPRAZOL [Concomitant]
     Indication: PROPHYLAXIS AGAINST GASTROINTESTINAL ULCER
     Route: 048
     Dates: start: 20130325
  7. ENALAPRIL [Concomitant]
     Indication: HYPERTENSION
     Route: 048
     Dates: start: 20130327
  8. SEPTRIN [Concomitant]
     Indication: PROPHYLAXIS
     Route: 048
     Dates: start: 20130325

REACTIONS (1)
  - Hepatitis [Recovered/Resolved]
